FAERS Safety Report 9381854 (Version 1)
Quarter: 2013Q3

REPORT INFORMATION
  Report Type: Spontaneous
  Country: US (occurrence: US)
  Receive Date: 20130703
  Receipt Date: 20130703
  Transmission Date: 20140515
  Serious: No
  Sender: FDA-Public Use
  Company Number: US-PFIZER INC-2013154678

PATIENT
  Sex: Male

DRUGS (1)
  1. CELEBREX [Suspect]
     Dosage: 200 MG, ONCE DAILY

REACTIONS (4)
  - Feeling hot [Unknown]
  - Insomnia [Unknown]
  - Anxiety [Unknown]
  - Depressed mood [Unknown]
